FAERS Safety Report 11745550 (Version 4)
Quarter: 2017Q4

REPORT INFORMATION
  Report Type: Spontaneous
  Country: US (occurrence: US)
  Receive Date: 20151117
  Receipt Date: 20171006
  Transmission Date: 20180320
  Serious: Yes (Hospitalization, Disabling, Other)
  Sender: FDA-Public Use
  Company Number: US-009507513-1511USA008400

PATIENT
  Sex: Female
  Weight: 54.88 kg

DRUGS (5)
  1. CALCIUM (UNSPECIFIED) [Concomitant]
     Active Substance: CALCIUM
     Indication: PRODUCT USED FOR UNKNOWN INDICATION
     Dosage: 600 MG, QD
     Route: 048
     Dates: start: 2006
  2. ALENDRONATE SODIUM. [Suspect]
     Active Substance: ALENDRONATE SODIUM
     Indication: OSTEOPOROSIS
     Dosage: 70 MG, QW
     Route: 048
     Dates: start: 200802, end: 201302
  3. FOSAMAX [Suspect]
     Active Substance: ALENDRONATE SODIUM
     Indication: OSTEOPENIA
     Dosage: UNK, QD
     Route: 048
     Dates: end: 201212
  4. FOSAMAX [Suspect]
     Active Substance: ALENDRONATE SODIUM
     Indication: OSTEOPOROSIS
     Dosage: 70 MG, QW
     Route: 048
     Dates: start: 2005, end: 200801
  5. CHOLECALCIFEROL [Concomitant]
     Active Substance: CHOLECALCIFEROL
     Indication: PRODUCT USED FOR UNKNOWN INDICATION
     Dosage: 2000 IU, QD
     Route: 048
     Dates: start: 2006

REACTIONS (17)
  - Acute sinusitis [Unknown]
  - Hypoacusis [Unknown]
  - Calcium deficiency [Unknown]
  - Hyperlipidaemia [Unknown]
  - Depression [Unknown]
  - Pollakiuria [Unknown]
  - Spinal disorder [Unknown]
  - Lipoatrophy [Unknown]
  - Dyspnoea paroxysmal nocturnal [Unknown]
  - Irritable bowel syndrome [Recovered/Resolved]
  - Bone disorder [Unknown]
  - Pain in extremity [Unknown]
  - Femur fracture [Unknown]
  - Osteoporosis [Unknown]
  - Pharyngitis [Unknown]
  - Essential hypertension [Unknown]
  - Weight increased [Unknown]

NARRATIVE: CASE EVENT DATE: 2010
